FAERS Safety Report 15583231 (Version 2)
Quarter: 2019Q1

REPORT INFORMATION
  Report Type: Other
  Country: CA (occurrence: CA)
  Receive Date: 20181105
  Receipt Date: 20190107
  Transmission Date: 20190417
  Serious: Yes (Other)
  Sender: FDA-Public Use
  Company Number: CA-HLSUS-2018-CA-001656

PATIENT
  Age: 61 Year
  Sex: Female

DRUGS (1)
  1. CLOZAPINE. [Suspect]
     Active Substance: CLOZAPINE
     Indication: PRODUCT USED FOR UNKNOWN INDICATION
     Dosage: 1 EVERY 24 HOUR(S)
     Route: 048

REACTIONS (13)
  - Constipation [Unknown]
  - Chronic sinusitis [Unknown]
  - Gastrooesophageal reflux disease [Unknown]
  - Granulocytopenia [Unknown]
  - Dermatitis contact [Unknown]
  - Leukopenia [Unknown]
  - Drug ineffective [Unknown]
  - Schizophrenia [Unknown]
  - Impaired self-care [Unknown]
  - Personality disorder [Unknown]
  - Urinary tract infection [Unknown]
  - Psychiatric decompensation [Unknown]
  - Stress urinary incontinence [Unknown]
